FAERS Safety Report 25320748 (Version 1)
Quarter: 2025Q2

REPORT INFORMATION
  Report Type: Spontaneous
  Country: US (occurrence: US)
  Receive Date: 20250515
  Receipt Date: 20250515
  Transmission Date: 20250717
  Serious: No
  Sender: SANOFI AVENTIS
  Company Number: US-SA-2025SA134759

PATIENT
  Age: 95 Year
  Sex: Male

DRUGS (16)
  1. DUPIXENT [Suspect]
     Active Substance: DUPILUMAB
     Indication: Dermatitis atopic
     Route: 058
     Dates: start: 20250225
  2. TACROLIMUS [Concomitant]
     Active Substance: TACROLIMUS
  3. GABAPENTIN [Concomitant]
     Active Substance: GABAPENTIN
  4. OMEPRAZOLE [Concomitant]
     Active Substance: OMEPRAZOLE
  5. OSTEO BI-FLEX TRIPLE STRENGTH WITH VITAMIN D [Concomitant]
  6. TORSEMIDE [Concomitant]
     Active Substance: TORSEMIDE
  7. LEVOTHYROXINE [Concomitant]
     Active Substance: LEVOTHYROXINE
  8. ALLOPURINOL [Concomitant]
     Active Substance: ALLOPURINOL
  9. CLOTRIMAZOLE [Concomitant]
     Active Substance: CLOTRIMAZOLE
  10. CLOBETASOL [Concomitant]
     Active Substance: CLOBETASOL
  11. ACEPROMETAZINE [Concomitant]
     Active Substance: ACEPROMETAZINE
  12. TRIAMCINOLONE [Concomitant]
     Active Substance: TRIAMCINOLONE
  13. POTASSIUM [Concomitant]
     Active Substance: POTASSIUM
  14. GUAIFENESIN [Concomitant]
     Active Substance: GUAIFENESIN
  15. ATORVASTATIN [Concomitant]
     Active Substance: ATORVASTATIN
  16. ELIQUIS [Concomitant]
     Active Substance: APIXABAN

REACTIONS (4)
  - Erythema [Recovering/Resolving]
  - Injection site erythema [Recovering/Resolving]
  - Injection site pain [Recovering/Resolving]
  - Injection site pruritus [Recovering/Resolving]

NARRATIVE: CASE EVENT DATE: 20250506
